FAERS Safety Report 7045101-7 (Version None)
Quarter: 2010Q4

REPORT INFORMATION
  Report Type: 
  Country: None (occurrence: None)
  Receive Date: 20101014
  Receipt Date: 20100316
  Transmission Date: 20110411
  Serious: No
  Sender: FDA-Public Use
  Company Number: US-BRISTOL-MYERS SQUIBB COMPANY-14970024

PATIENT
  Age: 91 Year
  Sex: Female

DRUGS (1)
  1. GLUCOPHAGE XR [Suspect]

REACTIONS (1)
  - DRUG DISPENSING ERROR [None]
